FAERS Safety Report 10163528 (Version 1)
Quarter: 2014Q2

REPORT INFORMATION
  Report Type: Spontaneous
  Country: CN (occurrence: CN)
  Receive Date: 20140509
  Receipt Date: 20140509
  Transmission Date: 20141212
  Serious: Yes (Death, Other)
  Sender: FDA-Public Use
  Company Number: CN-ELI_LILLY_AND_COMPANY-CN201405002138

PATIENT
  Sex: 0

DRUGS (4)
  1. PEMETREXED [Suspect]
     Indication: OESOPHAGEAL SQUAMOUS CELL CARCINOMA
     Dosage: 400 MG/M2, OTHER
     Route: 042
  2. CISPLATIN [Suspect]
     Indication: OESOPHAGEAL SQUAMOUS CELL CARCINOMA
     Route: 042
  3. FOLIC ACID [Concomitant]
     Indication: PROPHYLAXIS
     Dosage: UNK
     Route: 065
  4. VITAMIN B12 [Concomitant]
     Indication: PROPHYLAXIS
     Route: 065

REACTIONS (1)
  - Oesophageal fistula [Fatal]
